FAERS Safety Report 15724398 (Version 1)
Quarter: 2018Q4

REPORT INFORMATION
  Report Type: Spontaneous
  Country: GR (occurrence: GR)
  Receive Date: 20181214
  Receipt Date: 20181214
  Transmission Date: 20190205
  Serious: Yes (Other)
  Sender: FDA-Public Use
  Company Number: GR-BAUSCH-BL-2018-034766

PATIENT
  Age: 65 Year

DRUGS (1)
  1. METFORMIN HYDROCHLORIDE. [Suspect]
     Active Substance: METFORMIN HYDROCHLORIDE
     Indication: TYPE 2 DIABETES MELLITUS
     Route: 065

REACTIONS (5)
  - Left ventricular dysfunction [Unknown]
  - Neuropathy peripheral [Unknown]
  - Pulmonary oedema [Unknown]
  - Retinopathy [Unknown]
  - Drug ineffective [Unknown]
